FAERS Safety Report 10078426 (Version 2)
Quarter: 2014Q2

REPORT INFORMATION
  Report Type: Spontaneous
  Country: CH (occurrence: CH)
  Receive Date: 20140415
  Receipt Date: 20140415
  Transmission Date: 20141212
  Serious: Yes (Other)
  Sender: FDA-Public Use
  Company Number: CH-AMGEN-CHESP2014013494

PATIENT
  Age: 71 Year
  Sex: Female

DRUGS (2)
  1. PROLIA [Suspect]
     Indication: OSTEOPOROSIS POSTMENOPAUSAL
     Dosage: 60 MG, UNK
     Route: 065
     Dates: start: 20130212
  2. ATARAX                             /00058401/ [Concomitant]

REACTIONS (24)
  - Gouty arthritis [Recovering/Resolving]
  - Paralysis [Unknown]
  - Hypoaesthesia [Unknown]
  - Rash pruritic [Unknown]
  - Feeling hot [Unknown]
  - Laboratory test abnormal [Recovering/Resolving]
  - Burning sensation [Unknown]
  - Paraesthesia [Unknown]
  - Dyspnoea [Unknown]
  - Fall [Unknown]
  - Dizziness [Unknown]
  - Muscle spasms [Unknown]
  - Anxiety [Unknown]
  - Depression [Unknown]
  - Head discomfort [Unknown]
  - Vomiting [Unknown]
  - Gingival bleeding [Unknown]
  - Dry skin [Unknown]
  - Skin wrinkling [Unknown]
  - Feeling abnormal [Unknown]
  - Sleep disorder [Unknown]
  - Pruritus [Unknown]
  - Arthralgia [Unknown]
  - Pain in extremity [Unknown]
